FAERS Safety Report 5545601-2 (Version None)
Quarter: 2007Q4

REPORT INFORMATION
  Report Type: 
  Country: None (occurrence: None)
  Receive Date: 20071211
  Receipt Date: 20070127
  Transmission Date: 20080405
  Serious: No
  Sender: FDA-Public Use
  Company Number: US-AMGEN-KDL208841

PATIENT
  Sex: Female

DRUGS (2)
  1. ENBREL [Suspect]
     Indication: PSORIATIC ARTHROPATHY
     Route: 058
     Dates: start: 20061216
  2. METHOTREXATE [Concomitant]

REACTIONS (4)
  - BLOOD PRESSURE INCREASED [None]
  - COUGH [None]
  - HEART RATE INCREASED [None]
  - INFLUENZA [None]
